FAERS Safety Report 9377980 (Version 2)
Quarter: 2013Q3

REPORT INFORMATION
  Report Type: Spontaneous
  Country: JP (occurrence: JP)
  Receive Date: 20130701
  Receipt Date: 20130829
  Transmission Date: 20140515
  Serious: Yes (Hospitalization)
  Sender: FDA-Public Use
  Company Number: JP-ELI_LILLY_AND_COMPANY-JP201306005696

PATIENT
  Age: 70 Year
  Sex: Female
  Weight: 44 kg

DRUGS (10)
  1. ALIMTA [Suspect]
     Indication: LUNG ADENOCARCINOMA STAGE IV
     Dosage: 690 MG, OTHER
     Route: 042
     Dates: start: 20121018, end: 20121018
  2. ALIMTA [Suspect]
     Dosage: 620 MG, OTHER
     Route: 042
     Dates: start: 20121108, end: 20121108
  3. ALIMTA [Suspect]
     Dosage: 600 MG, OTHER
     Route: 042
     Dates: start: 20121130, end: 20121130
  4. TARCEVA [Suspect]
     Indication: LUNG ADENOCARCINOMA STAGE IV
     Dosage: 150 MG, QD
     Route: 048
     Dates: start: 20120202, end: 2012
  5. CYANOCOBALAMIN [Concomitant]
     Indication: PROPHYLAXIS
     Dosage: UNK
     Route: 030
     Dates: start: 20121015
  6. PANVITAN                           /00466101/ [Concomitant]
     Indication: PROPHYLAXIS
     Dosage: UNK
     Route: 048
     Dates: start: 20121015
  7. CORINAEL L [Concomitant]
     Dosage: UNK
     Route: 048
  8. ALMYLAR [Concomitant]
     Dosage: UNK
     Route: 048
  9. NICHISTATE [Concomitant]
     Dosage: UNK
     Route: 048
  10. CALCIUM LACTATE [Concomitant]
     Dosage: UNK
     Route: 048

REACTIONS (2)
  - Pneumatosis intestinalis [Recovered/Resolved]
  - Neutrophil count decreased [Recovered/Resolved]
